FAERS Safety Report 13392959 (Version 2)
Quarter: 2017Q2

REPORT INFORMATION
  Report Type: Spontaneous
  Country: CH (occurrence: CH)
  Receive Date: 20170331
  Receipt Date: 20170503
  Transmission Date: 20170830
  Serious: Yes (Death, Other)
  Sender: FDA-Public Use
  Company Number: CH-JNJFOC-20170333041

PATIENT
  Age: 84 Year
  Sex: Female
  Weight: 71 kg

DRUGS (16)
  1. ESOMEPRAZOLE MAGNESIUM. [Concomitant]
     Active Substance: ESOMEPRAZOLE MAGNESIUM
     Route: 065
     Dates: start: 20170318, end: 20170320
  2. ZESTRIL [Concomitant]
     Active Substance: LISINOPRIL
     Route: 065
     Dates: start: 2016, end: 20170318
  3. VITAMIN D3 STREULI [Concomitant]
     Route: 065
     Dates: start: 2016, end: 20170320
  4. TOREM [Concomitant]
     Active Substance: TORSEMIDE
     Route: 065
     Dates: start: 2016, end: 20170318
  5. KALIUM HAUSMANN KCL [Concomitant]
     Route: 065
     Dates: start: 20170317, end: 20170317
  6. CORDARONE [Interacting]
     Active Substance: AMIODARONE HYDROCHLORIDE
     Indication: PRODUCT USED FOR UNKNOWN INDICATION
     Route: 065
     Dates: start: 20170317, end: 20170320
  7. ATORVASTATIN [Concomitant]
     Active Substance: ATORVASTATIN
     Route: 065
     Dates: start: 2016, end: 20170319
  8. TRANSIPEG [Concomitant]
     Active Substance: POLYETHYLENE GLYCOL 3350
     Route: 065
     Dates: start: 2016, end: 20170320
  9. METOPROLOL SUCCINATE. [Concomitant]
     Active Substance: METOPROLOL SUCCINATE
     Route: 065
     Dates: start: 2016, end: 20170319
  10. PASPERTIN [Concomitant]
     Active Substance: METOCLOPRAMIDE HYDROCHLORIDE
     Route: 065
     Dates: start: 20170318, end: 20170320
  11. SPASMO URGENIN TC [Concomitant]
     Route: 065
     Dates: start: 2016, end: 20170319
  12. KALCIPOS-D [Concomitant]
     Active Substance: CALCIUM CARBONATE\CHOLECALCIFEROL
     Route: 065
     Dates: start: 2016, end: 20170319
  13. KALIUM HAUSMANN EFFERVETTES [Concomitant]
     Route: 065
     Dates: start: 20170318, end: 20170319
  14. XARELTO [Suspect]
     Active Substance: RIVAROXABAN
     Indication: ATRIAL FIBRILLATION
     Route: 048
     Dates: start: 2015, end: 20170319
  15. SERESTA [Concomitant]
     Active Substance: OXAZEPAM
     Route: 065
     Dates: start: 2016, end: 20170319
  16. BACTRIM [Concomitant]
     Active Substance: SULFAMETHOXAZOLE\TRIMETHOPRIM
     Route: 065
     Dates: start: 20170318, end: 20170319

REACTIONS (3)
  - Drug interaction [Not Recovered/Not Resolved]
  - Anticoagulation drug level increased [Not Recovered/Not Resolved]
  - Glomerular filtration rate decreased [Unknown]

NARRATIVE: CASE EVENT DATE: 20170317
